FAERS Safety Report 6302978-8 (Version None)
Quarter: 2009Q3

REPORT INFORMATION
  Report Type: 
  Country: None (occurrence: None)
  Receive Date: 20090810
  Receipt Date: 20090805
  Transmission Date: 20100115
  Serious: Yes (Other)
  Sender: FDA-Public Use
  Company Number: US-ASTRAZENECA-2009UW15047

PATIENT
  Sex: Female

DRUGS (1)
  1. CRESTOR [Suspect]
     Indication: BLOOD TRIGLYCERIDES INCREASED
     Route: 048
     Dates: end: 20090701

REACTIONS (5)
  - MENTAL DISORDER [None]
  - MUSCLE SPASMS [None]
  - PAIN IN EXTREMITY [None]
  - VASCULAR INJURY [None]
  - VENOUS INSUFFICIENCY [None]
